FAERS Safety Report 21701241 (Version 2)
Quarter: 2022Q4

REPORT INFORMATION
  Report Type: Spontaneous
  Country: US (occurrence: US)
  Receive Date: 20221208
  Receipt Date: 20221212
  Transmission Date: 20230112
  Serious: Yes (Death, Other)
  Sender: FDA-Public Use
  Company Number: US-PFIZER INC-202201359048

PATIENT
  Age: 60 Year
  Sex: Female

DRUGS (1)
  1. XELJANZ XR [Suspect]
     Active Substance: TOFACITINIB CITRATE
     Indication: Rheumatoid arthritis
     Dosage: 11 MG, 1X/DAY
     Route: 048
     Dates: start: 201808

REACTIONS (8)
  - Acute respiratory failure [Fatal]
  - Pulmonary embolism [Fatal]
  - Transitional cell carcinoma [Fatal]
  - Chronic obstructive pulmonary disease [Fatal]
  - Pneumonia [Fatal]
  - Hydronephrosis [Unknown]
  - Transitional cell cancer of the renal pelvis and ureter [Unknown]
  - Haematuria [Unknown]

NARRATIVE: CASE EVENT DATE: 20180823
